FAERS Safety Report 8343304-2 (Version None)
Quarter: 2012Q2

REPORT INFORMATION
  Report Type: 
  Country: None (occurrence: None)
  Receive Date: 20120508
  Receipt Date: 20120501
  Transmission Date: 20120825
  Serious: Yes (Hospitalization)
  Sender: FDA-Public Use
  Company Number: PHHY2012US037130

PATIENT
  Age: 59 Year
  Sex: Female

DRUGS (4)
  1. TRASTUZUMAB [Concomitant]
  2. LEVOTHYROXINE SODIUM [Concomitant]
     Dosage: 150 UG, QD
     Route: 048
  3. CARBOPLATIN [Concomitant]
  4. DOCETAXEL [Suspect]
     Indication: BREAST CANCER STAGE II

REACTIONS (14)
  - ANAEMIA [None]
  - CAROTIDYNIA [None]
  - FATIGUE [None]
  - DRUG HYPERSENSITIVITY [None]
  - PYREXIA [None]
  - ALANINE AMINOTRANSFERASE INCREASED [None]
  - CHILLS [None]
  - TENDERNESS [None]
  - RASH [None]
  - AORTIC DISORDER [None]
  - NECK PAIN [None]
  - BLOOD ALKALINE PHOSPHATASE INCREASED [None]
  - ASPARTATE AMINOTRANSFERASE INCREASED [None]
  - PROTEINURIA [None]
